FAERS Safety Report 11126617 (Version 2)
Quarter: 2015Q2

REPORT INFORMATION
  Report Type: Report from Study
  Country: US (occurrence: US)
  Receive Date: 20150520
  Receipt Date: 20150615
  Transmission Date: 20150821
  Serious: Yes (Hospitalization, Other)
  Sender: FDA-Public Use
  Company Number: US-BAXTER-2015BAX026417

PATIENT
  Sex: Female

DRUGS (1)
  1. GAMMAGARD LIQUID [Suspect]
     Active Substance: HUMAN IMMUNOGLOBULIN G
     Indication: IMMUNODEFICIENCY COMMON VARIABLE
     Route: 042

REACTIONS (6)
  - Pneumonia [Not Recovered/Not Resolved]
  - B-cell small lymphocytic lymphoma [Not Recovered/Not Resolved]
  - Lymphoma [Not Recovered/Not Resolved]
  - Abdominal distension [Not Recovered/Not Resolved]
  - Salmonellosis [Not Recovered/Not Resolved]
  - Nausea [Not Recovered/Not Resolved]
